FAERS Safety Report 23237765 (Version 1)
Quarter: 2023Q4

REPORT INFORMATION
  Report Type: Report from Study
  Country: US (occurrence: US)
  Receive Date: 20231128
  Receipt Date: 20231128
  Transmission Date: 20240110
  Serious: Yes (Other)
  Sender: FDA-Public Use
  Company Number: US-ABBVIE-5516245

PATIENT
  Sex: Male

DRUGS (65)
  1. VENCLEXTA [Suspect]
     Active Substance: VENETOCLAX
     Indication: Chronic lymphocytic leukaemia
     Dosage: FORM STRENGTH: 100 MG
     Route: 048
  2. RITUXAN [Suspect]
     Active Substance: RITUXIMAB
     Indication: Product used for unknown indication
     Dosage: 750 MG IN SODIUM CHLORIDE 0.9%, WITH OVERFILL 625 ML (TOTAL VOLUME) CHEMO INFUSION?LAST ADMIN DAT...
     Route: 042
     Dates: start: 20230517
  3. RITUXAN [Suspect]
     Active Substance: RITUXIMAB
     Indication: Product used for unknown indication
     Dosage: 750 MG IN SODIUM CHLORIDE 0.9%, WITH OVERFILL 625 ML (TOTAL VOLUME) CHEMO INFUSION
     Route: 042
     Dates: start: 20230607
  4. RITUXAN [Suspect]
     Active Substance: RITUXIMAB
     Indication: Product used for unknown indication
     Dosage: 750 MG IN SODIUM CHLORIDE 0.9%, WITH OVERFILL 625 ML (TOTAL VOLUME) CHEMO INFUSION?LAST ADMIN DAT...
     Route: 042
     Dates: start: 20230428
  5. CYTOXAN [Concomitant]
     Active Substance: CYCLOPHOSPHAMIDE
     Indication: Product used for unknown indication
     Dosage: 600 MG IN SODIUM CHLORIDE 0.9%, WITH OVERFILL, TUBING 154 ML (TOTAL VOLUME) CHEMO?INFUSION
     Dates: start: 20231012, end: 20231012
  6. CYTOXAN [Concomitant]
     Active Substance: CYCLOPHOSPHAMIDE
     Indication: Product used for unknown indication
     Dosage: 600 MG IN SODIUM CHLORIDE 0.9%, WITH OVERFILL, TUBING 154 ML (TOTAL VOLUME) CHEMO?INFUSION
     Dates: start: 20231013
  7. CYTOXAN [Concomitant]
     Active Substance: CYCLOPHOSPHAMIDE
     Indication: Product used for unknown indication
     Dosage: 1,490 MG IN SODIUM CHLORIDE 0.9%, WITH OVERFILL, TUBING 363.5 ML (TOTAL VOLUME)?CHEMO INFUSION?LA...
     Dates: start: 20230607
  8. CYTOXAN [Concomitant]
     Active Substance: CYCLOPHOSPHAMIDE
     Indication: Product used for unknown indication
     Dosage: 1,490 MG IN SODIUM CHLORIDE 0.9%, WITH OVERFILL, TUBING 363.5 ML (TOTAL VOLUME)?CHEMO INFUSION?LA...
     Dates: start: 20230517
  9. CYTOXAN [Concomitant]
     Active Substance: CYCLOPHOSPHAMIDE
     Indication: Product used for unknown indication
     Dosage: 1,490 MG IN SODIUM CHLORIDE 0.9%, WITH OVERFILL, TUBING 363.5 ML (TOTAL VOLUME)?CHEMO INFUSION?LA...
     Dates: start: 20230428
  10. ONCOVIN [Concomitant]
     Active Substance: VINCRISTINE SULFATE
     Indication: Product used for unknown indication
     Dosage: 2 MG IN SODIUM CHLORIDE 0.9%, WITH OVERFILL 62 ML (TOTAL VOLUME) CHEMO INFUSION
     Dates: start: 20230607
  11. ONCOVIN [Concomitant]
     Active Substance: VINCRISTINE SULFATE
     Indication: Product used for unknown indication
     Dosage: 2 MG IN SODIUM CHLORIDE 0.9%, WITH OVERFILL 62 ML (TOTAL VOLUME) CHEMO INFUSION
     Dates: start: 20230517
  12. ONCOVIN [Concomitant]
     Active Substance: VINCRISTINE SULFATE
     Indication: Product used for unknown indication
     Dosage: 2 MG IN SODIUM CHLORIDE 0.9%, WITH OVERFILL 62 ML (TOTAL VOLUME) CHEMO INFUSION
     Dates: start: 20230428
  13. AKYNZEO [Concomitant]
     Indication: Product used for unknown indication
     Dosage: 235 MG IN SODIUM CHLORIDE 0.9%, WITH OVERFILL 80 ML (TOTAL VOLUME) IVPB
     Dates: start: 20230607
  14. AKYNZEO [Concomitant]
     Indication: Product used for unknown indication
     Dosage: 235 MG IN SODIUM CHLORIDE 0.9%, WITH OVERFILL 80 ML (TOTAL VOLUME) IVPB?LAST ADMIN DATE: 2023
     Dates: start: 20230517
  15. AKYNZEO [Concomitant]
     Indication: Product used for unknown indication
     Dosage: 235 MG IN SODIUM CHLORIDE 0.9%, WITH OVERFILL 80 ML (TOTAL VOLUME) IVPB?LAST ADMIN DATE: 2023
     Dates: start: 20230428
  16. ACYCLOVIR [Concomitant]
     Active Substance: ACYCLOVIR
     Indication: Product used for unknown indication
     Dosage: FORM STRENGTH: 800 MG TABLET
  17. CALQUENCE [Concomitant]
     Active Substance: ACALABRUTINIB
     Indication: Product used for unknown indication
     Dosage: FORM STRENGTH: TABLET 100 MG?LAST ADMIN DATE: 2022
     Dates: start: 20221123
  18. CALQUENCE [Concomitant]
     Active Substance: ACALABRUTINIB
     Indication: Product used for unknown indication
     Dosage: FORM STRENGTH: TABLET 100 MG?LAST ADMIN DATE: 2022
     Dates: start: 20221214
  19. CALQUENCE [Concomitant]
     Active Substance: ACALABRUTINIB
     Indication: Product used for unknown indication
     Dosage: FORM STRENGTH: TABLET 100 MG
     Dates: start: 20221221
  20. CALQUENCE [Concomitant]
     Active Substance: ACALABRUTINIB
     Indication: Product used for unknown indication
     Dosage: FORM STRENGTH: TABLET 100 MG
     Dates: start: 20230118
  21. TYLENOL [Concomitant]
     Active Substance: ACETAMINOPHEN
     Indication: Product used for unknown indication
     Dosage: FORM STRENGTH: 650 MG
     Dates: start: 20231109
  22. TYLENOL [Concomitant]
     Active Substance: ACETAMINOPHEN
     Indication: Product used for unknown indication
     Dosage: FORM STRENGTH: 650 MG?LAST ADMIN DATE: 2023
     Dates: start: 20231017
  23. TYLENOL [Concomitant]
     Active Substance: ACETAMINOPHEN
     Indication: Product used for unknown indication
     Dosage: FORM STRENGTH: 650 MG?LAST ADMIN DATE: 2023
     Dates: start: 20230507
  24. TYLENOL [Concomitant]
     Active Substance: ACETAMINOPHEN
     Indication: Product used for unknown indication
     Dosage: FORM STRENGTH: 650 MG?LAST ADMIN DATE: 2023
     Dates: start: 20230517
  25. TYLENOL [Concomitant]
     Active Substance: ACETAMINOPHEN
     Indication: Product used for unknown indication
     Dosage: FORM STRENGTH: 650 MG?LAST ADMIN DATE: 2023
     Dates: start: 20230428
  26. TYLENOL [Concomitant]
     Active Substance: ACETAMINOPHEN
     Indication: Product used for unknown indication
     Dosage: FORM STRENGTH: 650 MG
     Dates: start: 20221123
  27. ADRIAMYCIN [Concomitant]
     Active Substance: DOXORUBICIN HYDROCHLORIDE
     Indication: Product used for unknown indication
     Dosage: INJECTION 99 MG
     Dates: start: 20230607
  28. ADRIAMYCIN [Concomitant]
     Active Substance: DOXORUBICIN HYDROCHLORIDE
     Indication: Product used for unknown indication
     Dosage: INJECTION 99 MG?LAST ADMIN DATE: 2023
     Dates: start: 20230517
  29. ADRIAMYCIN [Concomitant]
     Active Substance: DOXORUBICIN HYDROCHLORIDE
     Indication: Product used for unknown indication
     Dosage: INJECTION 99 MG?LAST ADMIN DATE: 2023
     Dates: start: 20230428
  30. ATIVAN [Concomitant]
     Active Substance: LORAZEPAM
     Indication: Product used for unknown indication
     Dosage: INJECTION 1 MG
     Dates: start: 20230607
  31. BREYANZI [Concomitant]
     Active Substance: LISOCABTAGENE MARALEUCEL
     Indication: Product used for unknown indication
     Dosage: INJECTION 3.1 ML?CD4 70000000 CELLS/ML SUSPENSION
     Dates: start: 20231017
  32. BREYANZI [Concomitant]
     Active Substance: LISOCABTAGENE MARALEUCEL
     Indication: Product used for unknown indication
     Dosage: INJECTION 3.3 ML?CD4 70000000 CELLS/ML SUSPENSION
     Dates: start: 20231017
  33. ZOFRAN [Concomitant]
     Active Substance: ONDANSETRON HYDROCHLORIDE
     Indication: Product used for unknown indication
     Dosage: FORM STRENGTH: 16 MG
     Dates: start: 20231012
  34. ZOFRAN [Concomitant]
     Active Substance: ONDANSETRON HYDROCHLORIDE
     Indication: Product used for unknown indication
     Dosage: FORM STRENGTH: 16 MG
     Dates: start: 20231013
  35. NEULASTA [Concomitant]
     Active Substance: PEGFILGRASTIM
     Indication: Product used for unknown indication
     Dosage: INJECTOR 6 MG
     Dates: start: 20230607
  36. NEULASTA [Concomitant]
     Active Substance: PEGFILGRASTIM
     Indication: Product used for unknown indication
     Dosage: INJECTOR 6 MG?LAST ADMIN DATE: 2023
     Dates: start: 20230517
  37. NEULASTA [Concomitant]
     Active Substance: PEGFILGRASTIM
     Indication: Product used for unknown indication
     Dosage: INJECTOR 6 MG?LAST ADMIN DATE: 2023
     Dates: start: 20230428
  38. K-DUR [Concomitant]
     Active Substance: POTASSIUM CHLORIDE
     Indication: Product used for unknown indication
     Dosage: TABLET ER 40 MEQ
     Dates: start: 20231109
  39. K-DUR [Concomitant]
     Active Substance: POTASSIUM CHLORIDE
     Indication: Product used for unknown indication
     Dosage: TABLET ER 40 MEQ?LAST ADMIN DATE: 2023
     Dates: start: 20231019
  40. SODIUM CHLORIDE [Concomitant]
     Active Substance: SODIUM CHLORIDE
     Indication: Product used for unknown indication
     Dosage: 0.9% IV SOLUTION 1,000 ML?LAST ADMIN DATE: OCT 2023
     Route: 042
     Dates: start: 20231015
  41. SODIUM CHLORIDE [Concomitant]
     Active Substance: SODIUM CHLORIDE
     Indication: Product used for unknown indication
     Dosage: 0.9% IV SOLUTION 1,000 ML?LAST ADMIN DATE: OCT 2023
     Route: 042
     Dates: start: 20231013
  42. SODIUM CHLORIDE [Concomitant]
     Active Substance: SODIUM CHLORIDE
     Indication: Product used for unknown indication
     Dosage: 0.9% IV SOLUTION 1,000 ML?LAST ADMIN DATE: OCT 2023
     Route: 042
     Dates: start: 20231012
  43. SODIUM CHLORIDE [Concomitant]
     Active Substance: SODIUM CHLORIDE
     Indication: Product used for unknown indication
     Dosage: 0.9% IV SOLUTION 500 ML
     Route: 042
     Dates: start: 20231109
  44. SODIUM CHLORIDE [Concomitant]
     Active Substance: SODIUM CHLORIDE
     Indication: Product used for unknown indication
     Dosage: 0.9% IV SOLUTION 500 ML?LAST ADMIN DATE: 2023
     Route: 042
     Dates: start: 20231017
  45. SODIUM CHLORIDE [Concomitant]
     Active Substance: SODIUM CHLORIDE
     Indication: Product used for unknown indication
     Dosage: 0.9% IV SOLUTION 500 ML?LAST ADMIN DATE: 2023
     Route: 042
     Dates: start: 20230607
  46. SODIUM CHLORIDE [Concomitant]
     Active Substance: SODIUM CHLORIDE
     Indication: Product used for unknown indication
     Dosage: 0.9% IV SOLUTION 500 ML?LAST ADMIN DATE: 2023
     Route: 042
     Dates: start: 20230517
  47. SODIUM CHLORIDE [Concomitant]
     Active Substance: SODIUM CHLORIDE
     Indication: Product used for unknown indication
     Dosage: 0.9% IV SOLUTION 500 ML?LAST ADMIN DATE: 2023
     Dates: start: 20230428
  48. MIDODRINE [Concomitant]
     Active Substance: MIDODRINE
     Indication: Product used for unknown indication
     Dosage: FORM STRENGTH: 2.5 MG
  49. SULFAMETHOXAZOLE AND TRIMETHOPRIM [Concomitant]
     Active Substance: SULFAMETHOXAZOLE\TRIMETHOPRIM
     Indication: Product used for unknown indication
     Dosage: FORM STRENGTH: 800-160 MG PER TABLET
  50. TRIAMCINOLONE [Concomitant]
     Active Substance: TRIAMCINOLONE
     Indication: Product used for unknown indication
     Dosage: 0.1 % CREAM
  51. ZANUBRUTINIB [Concomitant]
     Active Substance: ZANUBRUTINIB
     Indication: Product used for unknown indication
     Dosage: 80 MG CAPSULE , OSU-22157
  52. BENADRYL [Concomitant]
     Active Substance: DIPHENHYDRAMINE HYDROCHLORIDE
     Indication: Product used for unknown indication
     Dosage: INJECTION 50 MG
     Dates: start: 20231109
  53. BENADRYL [Concomitant]
     Active Substance: DIPHENHYDRAMINE HYDROCHLORIDE
     Indication: Product used for unknown indication
     Dosage: INJECTION 25 MG?LAST ADMIN DATE: 2023
     Dates: start: 20231017
  54. BENADRYL [Concomitant]
     Active Substance: DIPHENHYDRAMINE HYDROCHLORIDE
     Indication: Product used for unknown indication
     Dosage: TABLET 50 MG
     Dates: start: 20230607
  55. BENADRYL [Concomitant]
     Active Substance: DIPHENHYDRAMINE HYDROCHLORIDE
     Indication: Product used for unknown indication
     Dosage: TABLET 50 MG?LAST ADMIN DATE: 2023
     Dates: start: 20230517
  56. BENADRYL [Concomitant]
     Active Substance: DIPHENHYDRAMINE HYDROCHLORIDE
     Indication: Product used for unknown indication
     Dosage: TABLET 50 MG?LAST ADMIN DATE: 2023
     Dates: start: 20230428
  57. BENADRYL [Concomitant]
     Active Substance: DIPHENHYDRAMINE HYDROCHLORIDE
     Indication: Product used for unknown indication
     Dosage: TABLET 25 MG
     Dates: start: 20230428
  58. DELTASONE [Concomitant]
     Active Substance: PREDNISONE
     Indication: Product used for unknown indication
     Dosage: TABLET 100 MG
     Dates: start: 20230607
  59. DELTASONE [Concomitant]
     Active Substance: PREDNISONE
     Indication: Product used for unknown indication
     Dosage: TABLET 100 MG?LAST ADMIN DATE: 2023
     Dates: start: 20230517
  60. DELTASONE [Concomitant]
     Active Substance: PREDNISONE
     Indication: Product used for unknown indication
     Dosage: TABLET 100 MG?LAST ADMIN DATE: 2023
     Dates: start: 20230428
  61. PRIVIGEN [Concomitant]
     Active Substance: HUMAN IMMUNOGLOBULIN G
     Indication: Product used for unknown indication
     Dosage: INFUSION 30 G
     Dates: start: 20231109
  62. FLUDARA [Concomitant]
     Active Substance: FLUDARABINE PHOSPHATE
     Indication: Product used for unknown indication
     Dosage: 60 MG IN SODIUM CHLORIDE 0.9%, WITH OVERFILL, TUBING 126.4 ML (TOTAL VOLUME) CHEMO?INFUSION
     Dates: start: 20231012, end: 20231012
  63. FLUDARA [Concomitant]
     Active Substance: FLUDARABINE PHOSPHATE
     Indication: Product used for unknown indication
     Dosage: 60 MG IN SODIUM CHLORIDE 0.9%, WITH OVERFILL, TUBING 126.4 ML (TOTAL VOLUME) CHEMO?INFUSION
     Dates: start: 20231013
  64. ALUMINUM HYDROXIDE\DIMETHICONE\MAGNESIUM HYDROXIDE [Concomitant]
     Active Substance: ALUMINUM HYDROXIDE\DIMETHICONE\MAGNESIUM HYDROXIDE
     Indication: Product used for unknown indication
     Dosage: SUSPENSION
  65. FLUDROCORTISONE [Concomitant]
     Active Substance: FLUDROCORTISONE
     Indication: Product used for unknown indication
     Dosage: FORM STRENGTH: 0.1 MG

REACTIONS (8)
  - Richter^s syndrome [Unknown]
  - Diffuse large B-cell lymphoma [Unknown]
  - Gastrooesophageal reflux disease [Unknown]
  - Tumour lysis syndrome [Unknown]
  - Orthostatic hypotension [Unknown]
  - Hypercalcaemia [Unknown]
  - Abdominal pain [Unknown]
  - Anaemia [Unknown]
